FAERS Safety Report 7007797-5 (Version None)
Quarter: 2010Q3

REPORT INFORMATION
  Report Type: 
  Country: None (occurrence: None)
  Receive Date: 20100922
  Receipt Date: 20100913
  Transmission Date: 20110219
  Serious: Yes (Other)
  Sender: FDA-Public Use
  Company Number: GB-ROCHE-712983

PATIENT
  Sex: Male
  Weight: 71.1 kg

DRUGS (9)
  1. TOCILIZUMAB [Suspect]
     Indication: RHEUMATOID ARTHRITIS
     Dosage: DOSE LEVEL: 8 MG/KG
     Route: 042
     Dates: start: 20090205
  2. TOCILIZUMAB [Suspect]
     Dosage: DOSE LEVEL: 8 MG/KG
     Route: 042
     Dates: start: 20100310
  3. TOCILIZUMAB [Suspect]
     Dosage: DOSE LEVEL: 8 MG/KG
     Route: 042
     Dates: start: 20100408
  4. TOCILIZUMAB [Suspect]
     Dosage: DOSE LEVEL: 8 MG/KG
     Route: 042
     Dates: start: 20100506
  5. TOCILIZUMAB [Suspect]
     Dosage: DOSE LEVEL: 8 MG/KG
     Route: 042
     Dates: start: 20100603
  6. PREDNISOLONE [Suspect]
     Indication: PRODUCT USED FOR UNKNOWN INDICATION
     Route: 048
     Dates: start: 20080627
  7. ACETAMINOPHEN AND CODEINE PHOSPHATE [Concomitant]
     Dosage: TDD REPORTED AS: 30/500 PRN
  8. CALCICHEW D3 FORTE [Concomitant]
  9. RISEDRONATE SODIUM [Concomitant]

REACTIONS (1)
  - CEREBROVASCULAR ACCIDENT [None]
